FAERS Safety Report 7458003-9 (Version None)
Quarter: 2011Q2

REPORT INFORMATION
  Report Type: 
  Country: None (occurrence: None)
  Receive Date: 20110504
  Receipt Date: 20110111
  Transmission Date: 20111010
  Serious: Yes (Other)
  Sender: FDA-Public Use
  Company Number: US-SANOFI-AVENTIS-2011SA002818

PATIENT
  Age: 37 Year
  Sex: Female

DRUGS (3)
  1. INSULIN PUMP [Suspect]
  2. APIDRA [Suspect]
     Dosage: 30 TO 40 UNITS
     Route: 065
  3. APIDRA [Suspect]
     Dosage: APPROXIMATELY 100 UNITS
     Route: 065
     Dates: start: 20110109

REACTIONS (2)
  - PRODUCT QUALITY ISSUE [None]
  - HYPERGLYCAEMIA [None]
